FAERS Safety Report 15505420 (Version 2)
Quarter: 2018Q4

REPORT INFORMATION
  Report Type: Spontaneous
  Country: PT (occurrence: PT)
  Receive Date: 20181016
  Receipt Date: 20181108
  Transmission Date: 20190205
  Serious: Yes (Other)
  Sender: FDA-Public Use
  Company Number: PT-BIOGEN-2018BI00641518

PATIENT
  Age: 24 Year
  Sex: Female
  Weight: 60 kg

DRUGS (1)
  1. TECFIDERA [Suspect]
     Active Substance: DIMETHYL FUMARATE
     Indication: RELAPSING-REMITTING MULTIPLE SCLEROSIS
     Dosage: STARTING DOSE
     Route: 048
     Dates: start: 20180731, end: 20180801

REACTIONS (7)
  - Abdominal pain upper [Unknown]
  - Urticaria [Recovered/Resolved]
  - Rash [Unknown]
  - Eructation [Unknown]
  - Diarrhoea [Unknown]
  - Flushing [Recovered/Resolved]
  - Swelling [Unknown]

NARRATIVE: CASE EVENT DATE: 20180731
